FAERS Safety Report 13229859 (Version 1)
Quarter: 2017Q1

REPORT INFORMATION
  Report Type: Spontaneous
  Country: US (occurrence: US)
  Receive Date: 20170213
  Receipt Date: 20170213
  Transmission Date: 20170428
  Serious: Yes (Other)
  Sender: FDA-Public Use
  Company Number: None

PATIENT
  Age: 43 Year
  Sex: Female

DRUGS (11)
  1. MS CONTIN [Concomitant]
     Active Substance: MORPHINE SULFATE
  2. AMPYRA [Suspect]
     Active Substance: DALFAMPRIDINE
     Indication: MULTIPLE SCLEROSIS
     Route: 048
     Dates: start: 201602
  3. DIAZEPAM. [Concomitant]
     Active Substance: DIAZEPAM
  4. REBIF [Concomitant]
     Active Substance: INTERFERON BETA-1A
  5. METHYLPREDNISOLONE. [Concomitant]
     Active Substance: METHYLPREDNISOLONE
  6. DILAUDID [Concomitant]
     Active Substance: HYDROMORPHONE HYDROCHLORIDE
  7. BACLOFEN. [Concomitant]
     Active Substance: BACLOFEN
  8. KEPPRA [Concomitant]
     Active Substance: LEVETIRACETAM
  9. OMEPRAZOLE. [Concomitant]
     Active Substance: OMEPRAZOLE
  10. TRANSDERM SCOP [Concomitant]
     Active Substance: SCOPOLAMINE
  11. GABAPENTIN. [Concomitant]
     Active Substance: GABAPENTIN

REACTIONS (3)
  - Seizure [None]
  - Vertigo [None]
  - Altered state of consciousness [None]

NARRATIVE: CASE EVENT DATE: 20170129
